FAERS Safety Report 8588811-2 (Version None)
Quarter: 2012Q3

REPORT INFORMATION
  Report Type: 
  Country: None (occurrence: None)
  Receive Date: 20120813
  Receipt Date: 20120514
  Transmission Date: 20120928
  Serious: Yes (Hospitalization, Other)
  Sender: FDA-Public Use
  Company Number: JP-009507513-1208JPN004901

PATIENT

DRUGS (14)
  1. PEG-INTRON [Suspect]
     Dosage: 0.9MCG/KG/WEEK
     Route: 058
     Dates: start: 20120502
  2. TELAVIC [Suspect]
     Route: 048
     Dates: start: 20120404, end: 20120424
  3. TELAVIC [Suspect]
     Indication: HEPATITIS C
     Route: 048
     Dates: start: 20120308, end: 20120403
  4. REBETOL [Suspect]
     Route: 048
     Dates: start: 20120411, end: 20120521
  5. TELAVIC [Suspect]
     Route: 048
     Dates: start: 20120425, end: 20120509
  6. VOLTAREN [Concomitant]
     Indication: PROPHYLAXIS
     Dosage: IT IS SINGLE USE DURING 25MG/DAY.
     Route: 048
     Dates: start: 20120308
  7. REBETOL [Suspect]
     Route: 048
     Dates: start: 20120328, end: 20120403
  8. REBETOL [Suspect]
     Route: 048
     Dates: start: 20120404, end: 20120410
  9. PEG-INTRON [Suspect]
     Indication: HEPATITIS C
     Dosage: 1.5MCG/KG/WEEK
     Route: 058
     Dates: start: 20120308, end: 20120501
  10. REBETOL [Suspect]
     Indication: HEPATITIS C
     Route: 048
     Dates: start: 20120308, end: 20120327
  11. PRAVASTATIN SODIUM [Concomitant]
     Indication: PROPHYLAXIS
     Route: 048
  12. MAGMITT [Concomitant]
     Indication: PROPHYLAXIS
     Route: 048
     Dates: start: 20120315
  13. GASTROM [Concomitant]
     Indication: PROPHYLAXIS
     Route: 048
     Dates: start: 20120321
  14. ALLOPURINOL [Concomitant]
     Indication: PROPHYLAXIS
     Route: 048
     Dates: start: 20120404

REACTIONS (3)
  - PYELONEPHRITIS [None]
  - ANAEMIA [None]
  - LOSS OF CONSCIOUSNESS [None]
